FAERS Safety Report 21812508 (Version 1)
Quarter: 2023Q1

REPORT INFORMATION
  Report Type: Spontaneous
  Country: FR (occurrence: FR)
  Receive Date: 20230103
  Receipt Date: 20230103
  Transmission Date: 20230418
  Serious: Yes (Hospitalization)
  Sender: FDA-Public Use
  Company Number: None

PATIENT
  Age: 65 Year
  Sex: Female
  Weight: 55 kg

DRUGS (2)
  1. EMEND [Interacting]
     Active Substance: APREPITANT
     Indication: Prophylaxis of nausea and vomiting
     Dosage: 125 MILLIGRAM, ONCE
     Route: 048
     Dates: start: 20221212, end: 20221214
  2. IFOSFAMIDE [Interacting]
     Active Substance: IFOSFAMIDE
     Indication: B-cell lymphoma
     Dosage: 5 GRAM PER SQUARE METRE
     Route: 042
     Dates: start: 20221213, end: 20221214

REACTIONS (1)
  - Encephalopathy [Recovering/Resolving]

NARRATIVE: CASE EVENT DATE: 20221214
